FAERS Safety Report 7456418-6 (Version None)
Quarter: 2011Q2

REPORT INFORMATION
  Report Type: 
  Country: None (occurrence: None)
  Receive Date: 20110503
  Receipt Date: 20110503
  Transmission Date: 20111010
  Serious: Yes (Death, Hospitalization, Other)
  Sender: FDA-Public Use
  Company Number: IT-ABBOTT-10P-083-0691530-00

PATIENT
  Sex: Female

DRUGS (13)
  1. HUMULIN R [Concomitant]
     Indication: PRODUCT USED FOR UNKNOWN INDICATION
     Dosage: 30IU DAILY
  2. KLACID [Suspect]
     Indication: PNEUMONIA
  3. COUMADIN [Suspect]
     Indication: PROPHYLAXIS
     Dosage: 1 UNIT DAILY AS NEEDED
     Route: 048
     Dates: start: 20070101, end: 20101207
  4. ALLOPURINOL [Suspect]
     Indication: HYPERURICAEMIA
     Dosage: 1 UNIT DAILY
     Route: 048
     Dates: start: 20100101, end: 20101210
  5. OMEPRAZOLE [Concomitant]
     Indication: PRODUCT USED FOR UNKNOWN INDICATION
     Dosage: 20MG DAILY
  6. CONGESCOR [Concomitant]
     Dosage: 1 UNIT DAILY
  7. ALDACTONE [Concomitant]
     Indication: PRODUCT USED FOR UNKNOWN INDICATION
     Dosage: 1 UNIT DAILY
  8. KLACID [Suspect]
     Indication: BRONCHOPNEUMONIA
     Dosage: 2 UNIT DAILY
     Route: 048
     Dates: start: 20101206
  9. ROCEPHIN [Concomitant]
     Indication: BRONCHOPNEUMONIA
     Dosage: 2 GRAM DAILY
     Route: 042
     Dates: start: 20101206, end: 20101210
  10. CONGESCOR [Concomitant]
     Indication: PRODUCT USED FOR UNKNOWN INDICATION
     Dosage: 1 UNIT DAILY
  11. NITRODERM [Concomitant]
     Indication: PRODUCT USED FOR UNKNOWN INDICATION
  12. LASIX [Concomitant]
     Indication: PRODUCT USED FOR UNKNOWN INDICATION
  13. HUMULIN I [Concomitant]
     Indication: PRODUCT USED FOR UNKNOWN INDICATION
     Dosage: 10IU DAILY IN EVENING

REACTIONS (6)
  - CARDIAC FAILURE [None]
  - FLUID RETENTION [None]
  - INTERNATIONAL NORMALISED RATIO INCREASED [None]
  - C-REACTIVE PROTEIN INCREASED [None]
  - RESPIRATORY FAILURE [None]
  - PLEURAL EFFUSION [None]
